FAERS Safety Report 5221652-2 (Version None)
Quarter: 2007Q1

REPORT INFORMATION
  Report Type: 
  Country: None (occurrence: None)
  Receive Date: 20070129
  Receipt Date: 20070117
  Transmission Date: 20070707
  Serious: Yes (Other)
  Sender: FDA-Public Use
  Company Number: PHBS2007SE01220

PATIENT
  Sex: Female

DRUGS (1)
  1. SYNTOCINON [Suspect]
     Indication: ABNORMAL LABOUR

REACTIONS (1)
  - ANAPHYLACTIC REACTION [None]
